FAERS Safety Report 9750204 (Version 2)
Quarter: 2013Q4

REPORT INFORMATION
  Report Type: Spontaneous
  Country: US (occurrence: US)
  Receive Date: 20131212
  Receipt Date: 20131230
  Transmission Date: 20140711
  Serious: Yes (Hospitalization)
  Sender: FDA-Public Use
  Company Number: US-GLAXOSMITHKLINE-A1053290A

PATIENT
  Age: 49 Year
  Sex: Male

DRUGS (8)
  1. ADVAIR [Suspect]
     Indication: ASTHMA
     Dosage: 1PUFF TWICE PER DAY
     Route: 055
     Dates: start: 2003
  2. VENTOLIN [Suspect]
     Indication: ASTHMA
     Dosage: 90MCG UNKNOWN
     Route: 065
     Dates: start: 20121006
  3. SPIRIVA [Concomitant]
  4. ATROVENT [Concomitant]
  5. ALBUTEROL [Concomitant]
  6. THYROID MEDICATION [Concomitant]
  7. PREVACID [Concomitant]
  8. OXYGEN [Concomitant]

REACTIONS (5)
  - Lung abscess [Recovering/Resolving]
  - Aspiration [Recovering/Resolving]
  - Chronic obstructive pulmonary disease [Recovering/Resolving]
  - Dyspnoea [Recovering/Resolving]
  - Bronchospasm [Recovering/Resolving]
